FAERS Safety Report 19408902 (Version 3)
Quarter: 2021Q3

REPORT INFORMATION
  Report Type: Report from Study
  Country: US (occurrence: US)
  Receive Date: 20210613
  Receipt Date: 20210707
  Transmission Date: 20211014
  Serious: No
  Sender: FDA-Public Use
  Company Number: US-UCBSA-2021027799

PATIENT
  Sex: Female
  Weight: 63.5 kg

DRUGS (2)
  1. ROTIGOTINE [Suspect]
     Active Substance: ROTIGOTINE
     Dosage: 2 PATCHES A DAY
     Route: 062
     Dates: start: 2021
  2. ROTIGOTINE [Suspect]
     Active Substance: ROTIGOTINE
     Indication: RESTLESS LEGS SYNDROME
     Dosage: 3 MILLIGRAM, ONCE DAILY (QD)
     Dates: start: 2021

REACTIONS (2)
  - Device adhesion issue [Unknown]
  - Overdose [Unknown]

NARRATIVE: CASE EVENT DATE: 2021
